FAERS Safety Report 20350695 (Version 1)
Quarter: 2022Q1

REPORT INFORMATION
  Report Type: Spontaneous
  Country: US (occurrence: None)
  Receive Date: 20220119
  Receipt Date: 20220119
  Transmission Date: 20220424
  Serious: Yes (Hospitalization)
  Sender: FDA-Public Use
  Company Number: 2022A018762

PATIENT
  Sex: Female

DRUGS (1)
  1. SYMBICORT [Suspect]
     Active Substance: BUDESONIDE\FORMOTEROL FUMARATE DIHYDRATE
     Dosage: 120 MG UNKNOWN 120.0MG UNKNOWN
     Route: 055
     Dates: start: 2010

REACTIONS (6)
  - Asthma [Unknown]
  - Wheezing [Unknown]
  - Tongue eruption [Recovered/Resolved]
  - Feeling abnormal [Recovered/Resolved]
  - Sensitivity to weather change [Unknown]
  - Product dispensing error [Recovered/Resolved]
